FAERS Safety Report 25234132 (Version 1)
Quarter: 2025Q2

REPORT INFORMATION
  Report Type: Spontaneous
  Country: US (occurrence: None)
  Receive Date: 20250423
  Receipt Date: 20250423
  Transmission Date: 20250716
  Serious: Yes (Hospitalization)
  Sender: FDA-CTU
  Company Number: None

PATIENT
  Sex: Female
  Weight: 51.75 kg

DRUGS (2)
  1. WINREVAIR [Suspect]
     Active Substance: SOTATERCEPT-CSRK
     Indication: Pulmonary arterial hypertension
     Dosage: OTHER FREQUENCY : EVERY 3 WEEKS;?
     Route: 058
     Dates: start: 20240717
  2. ADEMPAS [Suspect]
     Active Substance: RIOCIGUAT

REACTIONS (5)
  - Amputee [None]
  - Lower limb fracture [None]
  - Brain fog [None]
  - Fatigue [None]
  - Dizziness [None]
